FAERS Safety Report 8365027-6 (Version None)
Quarter: 2012Q2

REPORT INFORMATION
  Report Type: 
  Country: None (occurrence: None)
  Receive Date: 20120516
  Receipt Date: 20120223
  Transmission Date: 20120825
  Serious: Yes (Other)
  Sender: FDA-Public Use
  Company Number: JP-GLAXOSMITHKLINE-B0784027A

PATIENT
  Sex: Male
  Weight: 22 kg

DRUGS (3)
  1. IBRUPROFEN [Concomitant]
     Indication: PHARYNGITIS
     Route: 048
     Dates: start: 20120212, end: 20120214
  2. RELENZA [Suspect]
     Indication: INFLUENZA
     Dosage: 20MG PER DAY
     Route: 055
     Dates: start: 20120212, end: 20120213
  3. MEIACT [Concomitant]
     Indication: PHARYNGITIS
     Route: 048
     Dates: start: 20120212, end: 20120217

REACTIONS (4)
  - HALLUCINATION [None]
  - RESTLESSNESS [None]
  - AGITATION [None]
  - NIGHTMARE [None]
